FAERS Safety Report 6769585-4 (Version None)
Quarter: 2010Q2

REPORT INFORMATION
  Report Type: 
  Country: None (occurrence: None)
  Receive Date: 20100615
  Receipt Date: 20100610
  Transmission Date: 20101027
  Serious: Yes (Other)
  Sender: FDA-Public Use
  Company Number: GR-SANOFI-AVENTIS-2010SA033760

PATIENT
  Age: 77 Year
  Sex: Male

DRUGS (6)
  1. ENOXAPARIN SODIUM [Suspect]
     Indication: PROPHYLAXIS
     Route: 058
  2. CLOPIDOGREL BISULFATE [Suspect]
  3. NEBIVOLOL HCL [Concomitant]
  4. AMLODIPINE [Concomitant]
  5. FUROSEMIDE [Concomitant]
  6. ISOSORBIDE MONONITRATE [Concomitant]

REACTIONS (3)
  - BACK PAIN [None]
  - EXTRADURAL HAEMATOMA [None]
  - PARAPLEGIA [None]
